FAERS Safety Report 12195077 (Version 1)
Quarter: 2016Q1

REPORT INFORMATION
  Report Type: Spontaneous
  Country: US (occurrence: US)
  Receive Date: 20160321
  Receipt Date: 20160321
  Transmission Date: 20160526
  Serious: No
  Sender: FDA-Public Use
  Company Number: US-TEVA-564394USA

PATIENT
  Age: 48 Year
  Sex: Female

DRUGS (1)
  1. ESCITALOPRAM [Suspect]
     Active Substance: ESCITALOPRAM OXALATE
     Indication: MENOPAUSAL SYMPTOMS
     Route: 048
     Dates: start: 20150313

REACTIONS (11)
  - Negative thoughts [Unknown]
  - Poor quality sleep [Unknown]
  - Product substitution issue [Unknown]
  - Depression [Unknown]
  - Fatigue [Unknown]
  - Off label use [Unknown]
  - Product use issue [Unknown]
  - Menopausal symptoms [Unknown]
  - Apathy [Unknown]
  - Irritability [Unknown]
  - Depressed mood [Unknown]

NARRATIVE: CASE EVENT DATE: 201504
